FAERS Safety Report 24091431 (Version 2)
Quarter: 2024Q4

REPORT INFORMATION
  Report Type: Spontaneous
  Country: US (occurrence: US)
  Receive Date: 20240715
  Receipt Date: 20241108
  Transmission Date: 20250115
  Serious: No
  Sender: BIOGEN
  Company Number: US-BIOGEN-2024BI01273069

PATIENT
  Sex: Male

DRUGS (2)
  1. TYSABRI [Suspect]
     Active Substance: NATALIZUMAB
     Indication: Multiple sclerosis
     Route: 050
     Dates: start: 20160610, end: 20180420
  2. TYSABRI [Suspect]
     Active Substance: NATALIZUMAB
     Route: 050
     Dates: start: 20131126, end: 20160405

REACTIONS (1)
  - Immunodeficiency common variable [Unknown]
